FAERS Safety Report 8666279 (Version 2)
Quarter: 2012Q4

REPORT INFORMATION
  Report Type: 
  Country: GR (occurrence: GR)
  Receive Date: 20120716
  Receipt Date: 20120910
  Transmission Date: 20130627
  Serious: Yes (Hospitalization, Other)
  Sender: FDA-Public Use
  Company Number: GR-ACTELION-A-CH2012-68431

PATIENT
  Age: 52 Year
  Sex: Female

DRUGS (3)
  1. TRACLEER [Suspect]
     Indication: DIGITAL ULCER
     Dosage: 62.5 mg, bid
     Route: 048
  2. MEDROL [Concomitant]
  3. TILDIEM [Concomitant]

REACTIONS (6)
  - Endometrial hyperplasia [Unknown]
  - Haematocrit decreased [Unknown]
  - Metrorrhagia [Unknown]
  - Endometrial ablation [Unknown]
  - Uterine dilation and curettage [Unknown]
  - Hysterectomy [Unknown]
